FAERS Safety Report 19964680 (Version 2)
Quarter: 2021Q4

REPORT INFORMATION
  Report Type: Spontaneous
  Country: JP (occurrence: JP)
  Receive Date: 20211018
  Receipt Date: 20211121
  Transmission Date: 20220303
  Serious: Yes (Other)
  Sender: FDA-Public Use
  Company Number: JP-MSD-M2021-24068

PATIENT
  Age: 75 Year
  Sex: Male

DRUGS (3)
  1. KEYTRUDA [Suspect]
     Active Substance: PEMBROLIZUMAB
     Indication: Head and neck cancer
     Dosage: 200 MILLIGRAM, Q3W
     Route: 041
     Dates: start: 202108
  2. CISPLATIN [Suspect]
     Active Substance: CISPLATIN
     Indication: Head and neck cancer
     Dosage: 100 MILLIGRAM/SQ. METER, Q3W
     Route: 041
     Dates: start: 202108, end: 202108
  3. FLUOROURACIL [Suspect]
     Active Substance: FLUOROURACIL
     Indication: Head and neck cancer
     Dosage: 1000 MILLIGRAM/SQ. METER, QD
     Route: 041
     Dates: start: 202108, end: 202108

REACTIONS (1)
  - Cytopenia [Recovering/Resolving]

NARRATIVE: CASE EVENT DATE: 20210801
